FAERS Safety Report 9024992 (Version 2)
Quarter: 2013Q4

REPORT INFORMATION
  Report Type: Spontaneous
  Country: US (occurrence: US)
  Receive Date: 20130121
  Receipt Date: 20131001
  Transmission Date: 20140711
  Serious: Yes (Hospitalization)
  Sender: FDA-Public Use
  Company Number: US-BAYER-2013-006817

PATIENT
  Age: 52 Year
  Sex: Female
  Weight: 90.25 kg

DRUGS (9)
  1. YASMIN [Suspect]
  2. OCELLA [Suspect]
  3. SAFYRAL [Suspect]
  4. NEXIUM [Concomitant]
     Dosage: 40 MG, UNK
     Route: 048
     Dates: start: 20120213
  5. LOSARTAN POTASSIUM W/HYDROCHLOROTHIAZIDE [Concomitant]
     Dosage: 100 - 12.5 MG
     Route: 048
     Dates: start: 20120222
  6. NAPROXEN SODIUM [Concomitant]
     Dosage: UNK
     Dates: start: 201203
  7. SIMVASTATIN [Concomitant]
     Dosage: UNK
     Dates: start: 201203
  8. ACETAMINOPHEN W/CODEINE [Concomitant]
     Dosage: UNK
     Route: 048
     Dates: start: 20120118
  9. METHOCARBAMOL [Concomitant]
     Dosage: 500 MG, UNK
     Route: 048
     Dates: start: 20120119

REACTIONS (4)
  - Pulmonary embolism [None]
  - Chest pain [None]
  - Back pain [None]
  - Dyspnoea [None]
